FAERS Safety Report 11229753 (Version 1)
Quarter: 2015Q2

REPORT INFORMATION
  Report Type: Spontaneous
  Country: HR (occurrence: HR)
  Receive Date: 20150630
  Receipt Date: 20150630
  Transmission Date: 20150821
  Serious: Yes (Other)
  Sender: FDA-Public Use
  Company Number: PHHY2015HR074593

PATIENT

DRUGS (1)
  1. KLIMICIN [Suspect]
     Active Substance: CLINDAMYCIN PHOSPHATE
     Indication: PULPITIS DENTAL
     Route: 048
     Dates: start: 20150604, end: 20150605

REACTIONS (4)
  - Malaise [Recovered/Resolved]
  - Diarrhoea [Recovered/Resolved]
  - Nausea [Recovered/Resolved]
  - Cold sweat [Recovered/Resolved]

NARRATIVE: CASE EVENT DATE: 20150604
